FAERS Safety Report 9200227 (Version 1)
Quarter: 2013Q1

REPORT INFORMATION
  Report Type: Spontaneous
  Country: GB (occurrence: GB)
  Receive Date: 20130329
  Receipt Date: 20130329
  Transmission Date: 20140127
  Serious: Yes (Other)
  Sender: FDA-Public Use
  Company Number: GB-UCBSA-081470

PATIENT
  Sex: Male

DRUGS (2)
  1. CIMZIA [Suspect]
  2. METHOTREXATE [Concomitant]

REACTIONS (1)
  - Tuberculosis gastrointestinal [Unknown]
